FAERS Safety Report 5397768-7 (Version None)
Quarter: 2007Q3

REPORT INFORMATION
  Report Type: 
  Country: None (occurrence: None)
  Receive Date: 20070726
  Receipt Date: 20070718
  Transmission Date: 20080115
  Serious: Yes (Hospitalization)
  Sender: FDA-Public Use
  Company Number: B0479541A

PATIENT
  Age: 54 Year
  Sex: Female

DRUGS (5)
  1. ZOVIRAX [Suspect]
     Route: 065
  2. FORTUM [Suspect]
     Route: 065
  3. CEFOTAXIME SODIUM [Suspect]
     Route: 065
  4. VANCOMYCIN [Suspect]
     Route: 065
  5. CHEMOTHERAPY [Concomitant]
     Route: 065

REACTIONS (7)
  - DRUG HYPERSENSITIVITY [None]
  - DRUG RASH WITH EOSINOPHILIA AND SYSTEMIC SYMPTOMS [None]
  - EOSINOPHILIA [None]
  - EYELID OEDEMA [None]
  - FACE OEDEMA [None]
  - HEPATITIS [None]
  - PYREXIA [None]
